FAERS Safety Report 9386052 (Version 3)
Quarter: 2013Q3

REPORT INFORMATION
  Report Type: Spontaneous
  Country: US (occurrence: US)
  Receive Date: 20130706
  Receipt Date: 20130812
  Transmission Date: 20140515
  Serious: No
  Sender: FDA-Public Use
  Company Number: US-009507513-1306USA013776

PATIENT
  Age: 70 Year
  Sex: Female
  Weight: 98.41 kg

DRUGS (9)
  1. NASONEX [Suspect]
     Indication: HYPERSENSITIVITY
     Dosage: 2 SPRAY IN EACH NOSTRIL ONCE DAILY
     Route: 055
     Dates: start: 20130620, end: 20130623
  2. NASONEX [Suspect]
     Indication: SINUSITIS
  3. DIVALPROEX SODIUM [Concomitant]
  4. CLONAZEPAM [Concomitant]
  5. LETROZOLE [Concomitant]
  6. LEVOTHYROXINE SODIUM [Concomitant]
  7. LISINOPRIL [Concomitant]
  8. OXYBUTYNIN [Concomitant]
  9. PANTOPRAZOLE [Concomitant]

REACTIONS (2)
  - Dizziness [Recovered/Resolved]
  - Headache [Recovered/Resolved]
